FAERS Safety Report 8790214 (Version 5)
Quarter: 2013Q3

REPORT INFORMATION
  Report Type: Report from Study
  Country: JP (occurrence: JP)
  Receive Date: 20120917
  Receipt Date: 20130719
  Transmission Date: 20140515
  Serious: Yes (Other)
  Sender: FDA-Public Use
  Company Number: JP-009507513-1209JPN005330

PATIENT
  Age: 61 Year
  Sex: Male
  Weight: 91 kg

DRUGS (15)
  1. PEGINTRON [Suspect]
     Indication: CHRONIC HEPATITIS C
     Dosage: 1.5 MICROGRAM PER KILOGRAM, QW,DAILY DOSE UNKNOWN
     Route: 058
     Dates: start: 20120703, end: 20120723
  2. PEGINTRON [Suspect]
     Dosage: 1.3 MICROGRAM PER KILOGRAM, QW,DAILY DOSE UNKNOWN
     Route: 058
     Dates: start: 20120724, end: 20120904
  3. PEGINTRON [Suspect]
     Dosage: UNK,DAILY DOSE UNKNOWN
     Route: 058
     Dates: start: 20120918
  4. REBETOL [Suspect]
     Indication: CHRONIC HEPATITIS C
     Dosage: 1000 MG, QD
     Route: 048
     Dates: start: 20120703, end: 20120724
  5. REBETOL [Suspect]
     Dosage: 800 MG, QD
     Route: 048
     Dates: start: 20120724, end: 20120807
  6. REBETOL [Suspect]
     Dosage: 400 MG, QD
     Route: 048
     Dates: start: 20120807, end: 20120904
  7. REBETOL [Suspect]
     Dosage: 400 MG, QD
     Route: 048
     Dates: start: 20120918
  8. TELAVIC [Suspect]
     Indication: CHRONIC HEPATITIS C
     Dosage: 2250 MG, QD
     Route: 048
     Dates: start: 20120703, end: 20120904
  9. URSO [Concomitant]
     Indication: CHRONIC HEPATITIS C
     Dosage: 600 MG, QD; FORMULATION: POR
     Route: 048
     Dates: end: 20120814
  10. CALBLOCK [Concomitant]
     Indication: HYPERTENSION
     Dosage: 16 MG, QD; FORMULATION: POR
     Route: 048
  11. OLMETEC [Concomitant]
     Indication: HYPERTENSION
     Dosage: 40 MG, QD; FORMULATION: POR
     Route: 048
  12. TRICHLORMETHIAZIDE [Concomitant]
     Indication: HYPERTENSION
     Dosage: 1 MG, QD; FORMULATION: POR
     Route: 048
  13. SELARA [Concomitant]
     Indication: HYPERTENSION
     Dosage: 50 MG, QD; FORMULATION: POR
     Route: 048
  14. WARFARIN [Concomitant]
     Indication: ARRHYTHMIA
     Dosage: 1 MG, QD; FORMULATION: POR
     Route: 048
  15. DENOSALIN [Concomitant]
     Indication: PROPHYLAXIS
     Dosage: 1000 ML, QD
     Route: 041
     Dates: start: 20120703, end: 20120710

REACTIONS (3)
  - Platelet count decreased [Recovered/Resolved]
  - Decreased appetite [Recovered/Resolved]
  - Renal impairment [Recovered/Resolved]
